FAERS Safety Report 9344694 (Version 1)
Quarter: 2013Q2

REPORT INFORMATION
  Report Type: Spontaneous
  Country: GB (occurrence: GB)
  Receive Date: 20130612
  Receipt Date: 20130612
  Transmission Date: 20140414
  Serious: Yes (Other)
  Sender: FDA-Public Use
  Company Number: GB-TEVA-411068ISR

PATIENT
  Age: 68 Year
  Sex: Male

DRUGS (1)
  1. AMOXICILLIN [Suspect]
     Route: 065

REACTIONS (2)
  - Drug reaction with eosinophilia and systemic symptoms [Unknown]
  - Dermatitis exfoliative [Unknown]
